FAERS Safety Report 16229652 (Version 1)
Quarter: 2019Q2

REPORT INFORMATION
  Report Type: Spontaneous
  Country: US (occurrence: US)
  Receive Date: 20190423
  Receipt Date: 20190423
  Transmission Date: 20190711
  Serious: Yes (Other)
  Sender: FDA-Public Use
  Company Number: US-UNITED THERAPEUTICS-UNT-2019-004786

PATIENT
  Age: 69 Year
  Sex: Female
  Weight: 69.39 kg

DRUGS (5)
  1. TYVASO [Suspect]
     Active Substance: TREPROSTINIL
     Dosage: UNK
  2. TADALAFIL. [Concomitant]
     Active Substance: TADALAFIL
     Indication: PRODUCT USED FOR UNKNOWN INDICATION
     Route: 065
  3. TYVASO [Suspect]
     Active Substance: TREPROSTINIL
     Dosage: UNK
  4. TYVASO [Suspect]
     Active Substance: TREPROSTINIL
     Indication: PULMONARY ARTERIAL HYPERTENSION
     Dosage: 18-54 MICROGRAMS, QID
     Dates: start: 20190219, end: 20190418
  5. TYVASO [Suspect]
     Active Substance: TREPROSTINIL
     Dosage: UNK, TID
     Dates: start: 201903

REACTIONS (17)
  - Off label use [Unknown]
  - Dyspnoea [Unknown]
  - Oropharyngeal pain [Unknown]
  - Headache [Unknown]
  - Chest discomfort [Not Recovered/Not Resolved]
  - Cough [Unknown]
  - Haemoptysis [Not Recovered/Not Resolved]
  - Gait disturbance [Unknown]
  - Sinus congestion [Unknown]
  - Vomiting [Unknown]
  - Throat irritation [Unknown]
  - Therapy non-responder [Unknown]
  - Decreased appetite [Unknown]
  - Hot flush [Unknown]
  - Condition aggravated [Unknown]
  - Dizziness [Unknown]
  - Diarrhoea [Unknown]

NARRATIVE: CASE EVENT DATE: 201902
